FAERS Safety Report 17955301 (Version 1)
Quarter: 2020Q2

REPORT INFORMATION
  Report Type: Spontaneous
  Country: US (occurrence: US)
  Receive Date: 20200626
  Receipt Date: 20200626
  Transmission Date: 20200714
  Serious: Yes (Other)
  Sender: FDA-Public Use
  Company Number: None

PATIENT
  Sex: Male

DRUGS (1)
  1. ROSUVASTATIN TABS 5 MG [Suspect]
     Active Substance: ROSUVASTATIN

REACTIONS (1)
  - Myalgia [None]
